FAERS Safety Report 6384387-9 (Version None)
Quarter: 2009Q4

REPORT INFORMATION
  Report Type: 
  Country: None (occurrence: None)
  Receive Date: 20091001
  Receipt Date: 20090924
  Transmission Date: 20100525
  Serious: Yes (Other)
  Sender: FDA-Public Use
  Company Number: GB-JNJFOC-20090707679

PATIENT
  Sex: Female
  Weight: 62 kg

DRUGS (11)
  1. REMICADE [Suspect]
     Indication: RHEUMATOID ARTHRITIS
     Route: 042
     Dates: start: 20050607
  2. LEFLUNOMIDE [Concomitant]
  3. AMITRIPTYLINE [Concomitant]
  4. CLOPIDOGREL [Concomitant]
  5. CO-CODAMOL [Concomitant]
  6. ISOTARD XL [Concomitant]
  7. LATANOPROST [Concomitant]
  8. SENNA [Concomitant]
  9. LEFLUNOMIDE [Concomitant]
  10. SIMVASTATIN [Concomitant]
  11. OTHER OPHTHALMOLOGICALS [Concomitant]

REACTIONS (1)
  - BASAL CELL CARCINOMA [None]
